FAERS Safety Report 9091928 (Version 1)
Quarter: 2013Q1

REPORT INFORMATION
  Report Type: Report from Study
  Country: US (occurrence: US)
  Receive Date: 20130201
  Receipt Date: 20130201
  Transmission Date: 20140127
  Serious: No
  Sender: FDA-Public Use
  Company Number: US-ABBOTT-12P-163-1022682-00

PATIENT
  Age: 63 Year
  Sex: Female

DRUGS (10)
  1. HUMIRA [Suspect]
     Indication: CROHN^S DISEASE
     Dosage: LOADING DOSE
     Dates: start: 20121130
  2. SINGULAIR [Concomitant]
     Indication: SEASONAL ALLERGY
     Dosage: DAILY
  3. LORATADINE [Concomitant]
     Indication: SEASONAL ALLERGY
  4. FLUTICASONE [Concomitant]
     Indication: SEASONAL ALLERGY
  5. ADVAIR [Concomitant]
     Indication: SEASONAL ALLERGY
     Dosage: INHALER
  6. ADVAIR [Concomitant]
     Dosage: RESCUE INHALER
  7. TOPICORT [Concomitant]
     Indication: ECZEMA
  8. CALCIUM [Concomitant]
     Indication: PRODUCT USED FOR UNKNOWN INDICATION
  9. VIT D [Concomitant]
     Indication: PRODUCT USED FOR UNKNOWN INDICATION
     Dosage: DAILY
  10. VIT E [Concomitant]
     Indication: PRODUCT USED FOR UNKNOWN INDICATION
     Dosage: DAILY

REACTIONS (1)
  - Insomnia [Unknown]
